FAERS Safety Report 20308642 (Version 1)
Quarter: 2022Q1

REPORT INFORMATION
  Report Type: Spontaneous
  Country: US (occurrence: None)
  Receive Date: 20220106
  Receipt Date: 20220106
  Transmission Date: 20220423
  Serious: Yes (Hospitalization)
  Sender: FDA-Public Use
  Company Number: None

PATIENT
  Sex: Female

DRUGS (9)
  1. ESBRIET [Suspect]
     Active Substance: PIRFENIDONE
     Indication: Pulmonary fibrosis
     Dosage: TAKE 3 TABLETS BY MOUTH THREE TIMES DAILY WITH MEALS?
     Route: 048
     Dates: start: 20190208
  2. ASPIRIN [Concomitant]
     Active Substance: ASPIRIN
  3. CALCIUM CITRATE [Concomitant]
     Active Substance: CALCIUM CITRATE
  4. LOSARTAN POTASSIUM [Concomitant]
     Active Substance: LOSARTAN POTASSIUM
  5. LOVASTATIN TAB [Concomitant]
  6. METOPROL SUC TAB [Concomitant]
  7. PREDNISONE [Concomitant]
     Active Substance: PREDNISONE
  8. VIT B-12 TAB [Concomitant]
  9. WARFARIN TAB [Concomitant]

REACTIONS (2)
  - Hospitalisation [None]
  - Intentional dose omission [None]
